FAERS Safety Report 4783531-4 (Version None)
Quarter: 2005Q3

REPORT INFORMATION
  Report Type: 
  Country: None (occurrence: None)
  Receive Date: 20050928
  Receipt Date: 20050928
  Transmission Date: 20060218
  Serious: No
  Sender: FDA-Public Use
  Company Number: None

PATIENT
  Age: 42 Year
  Sex: Male

DRUGS (15)
  1. GEMCITABINE  1.7GRAMS  ELLI LILLY [Suspect]
     Indication: NON-SMALL CELL LUNG CANCER
     Dosage: 1.7 GRAMS WEEKLY IV
     Route: 042
     Dates: start: 20050923, end: 20050923
  2. EFAVIRENZ [Concomitant]
  3. BACTRIM [Concomitant]
  4. METFORMIN [Concomitant]
  5. TRUVADA [Concomitant]
  6. CARBOPLATIN [Concomitant]
  7. ENOXAPARIN SODIUM [Concomitant]
  8. EXOMEPRAZOLE [Concomitant]
  9. GEMFIBRAZOL [Concomitant]
  10. HYDROXYZINE [Concomitant]
  11. SENNA [Concomitant]
  12. WARFARIN SODIUM [Concomitant]
  13. CARBOPLATIN [Concomitant]
  14. DEXAMETHASONE [Concomitant]
  15. ONDANSATRON [Concomitant]

REACTIONS (1)
  - HEPATIC FAILURE [None]
